FAERS Safety Report 5399771-X (Version None)
Quarter: 2007Q3

REPORT INFORMATION
  Report Type: 
  Country: None (occurrence: None)
  Receive Date: 20070727
  Receipt Date: 20070716
  Transmission Date: 20080115
  Serious: Yes (Death)
  Sender: FDA-Public Use
  Company Number: US-PFIZER INC-2006139830

PATIENT
  Age: 48 Year
  Sex: Female

DRUGS (2)
  1. DOXEPIN HCL [Suspect]
     Indication: SUICIDE ATTEMPT
  2. BENADRYL [Suspect]
     Indication: SUICIDE ATTEMPT

REACTIONS (5)
  - BLOOD PRESSURE DECREASED [None]
  - BRAIN DEATH [None]
  - CARDIO-RESPIRATORY ARREST [None]
  - COMPLETED SUICIDE [None]
  - LOSS OF CONSCIOUSNESS [None]
